FAERS Safety Report 9177395 (Version 1)
Quarter: 2013Q1

REPORT INFORMATION
  Report Type: Spontaneous
  Country: US (occurrence: US)
  Receive Date: 20130321
  Receipt Date: 20130321
  Transmission Date: 20140127
  Serious: Yes (Hospitalization)
  Sender: FDA-Public Use
  Company Number: US-ASTELLAS-2013US003027

PATIENT
  Sex: Male
  Weight: 95 kg

DRUGS (2)
  1. PROGRAF [Suspect]
     Indication: STEM CELL TRANSPLANT
     Dosage: 2 MG, UID/QD
     Route: 048
  2. PROGRAF [Suspect]
     Indication: B-CELL LYMPHOMA

REACTIONS (2)
  - Off label use [Unknown]
  - Hospitalisation [Unknown]
